FAERS Safety Report 15605431 (Version 1)
Quarter: 2018Q4

REPORT INFORMATION
  Report Type: Report from Study
  Country: ES (occurrence: ES)
  Receive Date: 20181112
  Receipt Date: 20181112
  Transmission Date: 20190205
  Serious: Yes (Hospitalization)
  Sender: FDA-Public Use
  Company Number: ES-ACCORD-091764

PATIENT
  Age: 11 Year
  Sex: Female

DRUGS (3)
  1. MERCAPTOPURINE/MERCAPTOPURINE ANHYDROUS [Suspect]
     Active Substance: MERCAPTOPURINE
     Indication: ACUTE LYMPHOCYTIC LEUKAEMIA
     Dosage: 20MG/ML 2 ML CADA 24HORAS
     Route: 048
     Dates: start: 20170403, end: 20170727
  2. SEPTRIM [Concomitant]
     Active Substance: SULFAMETHOXAZOLE\TRIMETHOPRIM
     Dosage: 400MG / 80 1 CP EVERY 12 HOURS V S D
     Route: 048
     Dates: start: 20170403
  3. METHOTREXATE. [Suspect]
     Active Substance: METHOTREXATE
     Indication: ACUTE LYMPHOCYTIC LEUKAEMIA
     Dosage: 2.5 MG, 4 CPS EVERY 7 DAYS
     Route: 048
     Dates: start: 20170403, end: 20170727

REACTIONS (2)
  - Enterocolitis [Recovered/Resolved]
  - Hepatitis acute [Recovered/Resolved]

NARRATIVE: CASE EVENT DATE: 20170720
